FAERS Safety Report 5195133-9 (Version None)
Quarter: 2006Q4

REPORT INFORMATION
  Report Type: 
  Country: None (occurrence: None)
  Receive Date: 20061229
  Receipt Date: 20010112
  Transmission Date: 20070319
  Serious: Yes (Other)
  Sender: FDA-Public Use
  Company Number: US-PFIZER INC-001-0945-M0100072

PATIENT
  Sex: Male
  Weight: 99.8 kg

DRUGS (6)
  1. NEURONTIN [Suspect]
     Indication: NEUROPATHY
     Route: 048
  2. LYRICA [Suspect]
     Indication: NEUROPATHY
     Route: 048
     Dates: start: 20060101, end: 20060301
  3. GABAPENTIN [Suspect]
     Indication: NEUROPATHY
  4. PERCOCET [Concomitant]
     Route: 065
  5. ZETIA [Concomitant]
     Route: 065
  6. ALL OTHER THERAPEUTIC PRODUCTS [Concomitant]
     Route: 065

REACTIONS (5)
  - ANAL SPHINCTER ATONY [None]
  - DIARRHOEA [None]
  - DRUG EFFECT DECREASED [None]
  - FAECAL INCONTINENCE [None]
  - NEUROPATHY [None]
